FAERS Safety Report 8553733 (Version 2)
Quarter: 2012Q4

REPORT INFORMATION
  Report Type: 
  Country: US (occurrence: US)
  Receive Date: 20120509
  Receipt Date: 20121002
  Transmission Date: 20130627
  Serious: Yes (Other)
  Sender: FDA-Public Use
  Company Number: US-ROCHE-1066910

PATIENT
  Sex: Female
  Weight: 72.64 kg

DRUGS (2)
  1. ACCUTANE [Suspect]
     Indication: ACNE
     Route: 065
     Dates: start: 198801, end: 198804
  2. ASACOL [Concomitant]

REACTIONS (4)
  - Colitis ulcerative [Unknown]
  - Irritable bowel syndrome [Unknown]
  - Injury [Unknown]
  - Depression [Unknown]
